FAERS Safety Report 15555584 (Version 1)
Quarter: 2018Q4

REPORT INFORMATION
  Report Type: Spontaneous
  Country: US (occurrence: US)
  Receive Date: 20181026
  Receipt Date: 20181026
  Transmission Date: 20190205
  Serious: No
  Sender: FDA-Public Use
  Company Number: US-BAYER-2018-198357

PATIENT
  Age: 81 Year
  Sex: Female

DRUGS (1)
  1. ALEVE PM [Suspect]
     Active Substance: DIPHENHYDRAMINE HYDROCHLORIDE\NAPROXEN SODIUM
     Dosage: UNK

REACTIONS (5)
  - Somnolence [None]
  - Agitation [None]
  - Wrong technique in product usage process [None]
  - Product use issue [Unknown]
  - Abdominal discomfort [None]

NARRATIVE: CASE EVENT DATE: 20181022
